FAERS Safety Report 5381661-X (Version None)
Quarter: 2007Q2

REPORT INFORMATION
  Report Type: 
  Country: None (occurrence: None)
  Receive Date: 20070629
  Receipt Date: 20060810
  Transmission Date: 20071010
  Serious: Yes (Other)
  Sender: FDA-Public Use
  Company Number: 2006097848

PATIENT
  Age: 75 Year
  Sex: Female
  Weight: 61.2356 kg

DRUGS (5)
  1. ZOLOFT [Suspect]
     Indication: DEPRESSION
     Dosage: 50 MG (50 MG, QD: EVERYDAY)
     Dates: start: 20060807
  2. ALL OTHER THERAPEUTIC PRODUCTS (ALL OTHER THERAPEUTIC PRODUCTS) [Suspect]
     Indication: RENAL CELL CARCINOMA STAGE UNSPECIFIED
     Dates: start: 20051101
  3. XANAX [Concomitant]
  4. LISINOPRIL [Concomitant]
  5. LIPITOR [Concomitant]

REACTIONS (2)
  - NAUSEA [None]
  - PALPITATIONS [None]
